FAERS Safety Report 16164384 (Version 1)
Quarter: 2019Q2

REPORT INFORMATION
  Report Type: Spontaneous
  Country: PL (occurrence: PL)
  Receive Date: 20190405
  Receipt Date: 20190405
  Transmission Date: 20190711
  Serious: Yes (Other)
  Sender: FDA-Public Use
  Company Number: PL-BAUSCH-BL-2019-009301

PATIENT
  Age: 2 Year
  Sex: Male

DRUGS (6)
  1. DEXAVEN [Suspect]
     Active Substance: DEXAMETHASONE
     Indication: ACUTE SINUSITIS
     Route: 042
  2. BIOFUROXIME (CEFUROXIME) [Suspect]
     Active Substance: CEFUROXIME
     Indication: ACUTE SINUSITIS
     Route: 042
  3. XYLOMETAZOLINE [Suspect]
     Active Substance: XYLOMETAZOLINE
     Route: 065
  4. BIOFUROXIME (CEFUROXIME) [Suspect]
     Active Substance: CEFUROXIME
     Indication: ACUTE SINUSITIS
     Route: 065
  5. DEXAVEN [Suspect]
     Active Substance: DEXAMETHASONE
     Indication: ACUTE SINUSITIS
     Route: 065
  6. XYLOMETAZOLINE [Suspect]
     Active Substance: XYLOMETAZOLINE
     Indication: ACUTE SINUSITIS
     Route: 045

REACTIONS (1)
  - Gastroenteritis [Recovering/Resolving]
